FAERS Safety Report 25307184 (Version 1)
Quarter: 2025Q2

REPORT INFORMATION
  Report Type: Report from Study
  Country: CA (occurrence: CA)
  Receive Date: 20250513
  Receipt Date: 20250513
  Transmission Date: 20250717
  Serious: Yes (Other)
  Sender: CELLTRION
  Company Number: CA-CELLTRION INC.-2024CA024543

PATIENT

DRUGS (4)
  1. YUFLYMA [Suspect]
     Active Substance: ADALIMUMAB-AATY
     Indication: Crohn^s disease
     Dosage: 40 MG, Q2WEEKS
     Route: 058
     Dates: start: 20240920
  2. YUFLYMA [Suspect]
     Active Substance: ADALIMUMAB-AATY
     Route: 058
  3. YUFLYMA [Suspect]
     Active Substance: ADALIMUMAB-AATY
     Route: 058
  4. YUFLYMA [Suspect]
     Active Substance: ADALIMUMAB-AATY
     Dosage: YUFLYMA 40MG SC Q 2 WEEKS
     Route: 058
     Dates: end: 20241031

REACTIONS (7)
  - Pneumonia [Not Recovered/Not Resolved]
  - Pain in jaw [Not Recovered/Not Resolved]
  - Trismus [Not Recovered/Not Resolved]
  - Product distribution issue [Not Recovered/Not Resolved]
  - Therapy interrupted [Not Recovered/Not Resolved]
  - Intentional dose omission [Not Recovered/Not Resolved]
  - Therapy non-responder [Not Recovered/Not Resolved]

NARRATIVE: CASE EVENT DATE: 20241001
